FAERS Safety Report 6454206-0 (Version None)
Quarter: 2009Q4

REPORT INFORMATION
  Report Type: 
  Country: None (occurrence: None)
  Receive Date: 20091124
  Receipt Date: 20091120
  Transmission Date: 20100525
  Serious: Yes (Death, Life-Threatening, Hospitalization, Disabling, Other)
  Sender: FDA-Public Use
  Company Number: CA-BRISTOL-MYERS SQUIBB COMPANY-13126370

PATIENT
  Age: 77 Year
  Sex: Male
  Weight: 102 kg

DRUGS (28)
  1. IRBESARTAN [Suspect]
     Indication: HYPERTENSION
     Dates: start: 20041112, end: 20050729
  2. WARFARIN SODIUM [Suspect]
     Indication: PROPHYLAXIS
     Dates: start: 20041112, end: 20050729
  3. VITAMIN K TAB [Concomitant]
  4. LABETALOL HCL [Concomitant]
     Route: 042
  5. DILANTIN [Concomitant]
     Route: 042
  6. NITROGLYCERIN [Concomitant]
  7. DIGOXIN [Concomitant]
  8. COMBIVENT [Concomitant]
  9. FUROSEMIDE [Concomitant]
  10. DILTIAZEM HCL [Concomitant]
  11. AMIODARONE HCL [Concomitant]
  12. NITROGLYCERIN [Concomitant]
     Route: 041
  13. ZANTAC [Concomitant]
  14. MAGNESIUM SULFATE [Concomitant]
  15. TYLENOL SUPPOSITORIES [Concomitant]
  16. RIFAMPIN [Concomitant]
  17. CEFTRIAXONE [Concomitant]
  18. VANCOMYCIN [Concomitant]
  19. METOPROLOL TARTRATE [Concomitant]
  20. FOLIC ACID [Concomitant]
  21. CLOXACILLIN [Concomitant]
  22. POTASSIUM CHLORIDE [Concomitant]
  23. ALDACTONE [Concomitant]
  24. LEVOPHED [Concomitant]
  25. DIAMOX SRC [Concomitant]
  26. ATROPINE [Concomitant]
  27. EPINEPHRINE [Concomitant]
  28. FLUCONAZOLE [Concomitant]

REACTIONS (2)
  - HAEMORRHAGE INTRACRANIAL [None]
  - RESPIRATORY FAILURE [None]
